FAERS Safety Report 21550061 (Version 3)
Quarter: 2022Q4

REPORT INFORMATION
  Report Type: Spontaneous
  Country: KR (occurrence: KR)
  Receive Date: 20221103
  Receipt Date: 20221205
  Transmission Date: 20230112
  Serious: Yes (Hospitalization)
  Sender: FDA-Public Use
  Company Number: KR-MYLANLABS-2022M1118871

PATIENT
  Age: 78 Year
  Sex: Female

DRUGS (7)
  1. CELECOXIB [Suspect]
     Active Substance: CELECOXIB
     Indication: Muscle atrophy
     Dosage: 1 DOSAGE FORM, QD
     Route: 065
     Dates: start: 20200110, end: 20200111
  2. LYRICA [Concomitant]
     Active Substance: PREGABALIN
     Indication: Muscle atrophy
     Dosage: UNK
     Route: 065
  3. MOSAPRIDE CITRATE DIHYDRATE [Concomitant]
     Active Substance: MOSAPRIDE CITRATE DIHYDRATE
     Dosage: UNK
     Route: 065
  4. L-VALINE [Concomitant]
     Dosage: UNK
     Route: 065
  5. L-ISOLEUCINE [Concomitant]
     Dosage: UNK
     Route: 065
  6. L-LEUCINE [Concomitant]
     Dosage: UNK
     Route: 065
  7. TRIAMCINOLONE [Concomitant]
     Active Substance: TRIAMCINOLONE
     Dosage: UNK
     Route: 065

REACTIONS (3)
  - Somnolence [Recovered/Resolved]
  - Listless [Recovered/Resolved]
  - Off label use [Unknown]

NARRATIVE: CASE EVENT DATE: 20200110
